FAERS Safety Report 24350761 (Version 1)
Quarter: 2024Q3

REPORT INFORMATION
  Report Type: Report from Study
  Country: CO (occurrence: CO)
  Receive Date: 20240923
  Receipt Date: 20240923
  Transmission Date: 20241016
  Serious: No
  Sender: ROCHE
  Company Number: CO-ROCHE-3523506

PATIENT
  Age: 57 Year
  Sex: Female
  Weight: 57.0 kg

DRUGS (5)
  1. HERCEPTIN [Suspect]
     Active Substance: TRASTUZUMAB
     Indication: Breast cancer
     Dosage: DOSE WAS ASKED BUT NOT REPORTED
     Route: 041
     Dates: start: 2023, end: 20240302
  2. AMLODIPINE [Concomitant]
     Active Substance: AMLODIPINE BESYLATE
  3. CORTICOSTEROID NOS [Concomitant]
     Active Substance: CORTICOSTEROID NOS
  4. ALUMINUM HYDROXIDE [Concomitant]
     Active Substance: ALUMINUM HYDROXIDE
  5. ONDANSETRON [Concomitant]
     Active Substance: ONDANSETRON

REACTIONS (1)
  - Headache [Not Recovered/Not Resolved]

NARRATIVE: CASE EVENT DATE: 20240211
